FAERS Safety Report 14048108 (Version 1)
Quarter: 2017Q4

REPORT INFORMATION
  Report Type: Report from Study
  Country: NL (occurrence: NL)
  Receive Date: 20171005
  Receipt Date: 20171005
  Transmission Date: 20180321
  Serious: Yes (Other)
  Sender: FDA-Public Use
  Company Number: NL-TEVA-812453ROM

PATIENT
  Age: 42 Year
  Sex: Female

DRUGS (4)
  1. PRAMIPEXOL [Concomitant]
     Active Substance: PRAMIPEXOLE
  2. BETAHISTINE 8MGR [Concomitant]
     Dosage: 24 MILLIGRAM DAILY;
  3. FLUOXETINE [Concomitant]
     Active Substance: FLUOXETINE HYDROCHLORIDE
     Dosage: 20 MILLIGRAM DAILY;
  4. COPAXONE [Suspect]
     Active Substance: GLATIRAMER ACETATE
     Indication: RELAPSING-REMITTING MULTIPLE SCLEROSIS
     Route: 058
     Dates: start: 20150424

REACTIONS (2)
  - Multiple sclerosis [Recovering/Resolving]
  - Ureteral catheterisation [Recovering/Resolving]

NARRATIVE: CASE EVENT DATE: 201706
